FAERS Safety Report 7941657-8 (Version None)
Quarter: 2011Q4

REPORT INFORMATION
  Report Type: 
  Country: None (occurrence: None)
  Receive Date: 20111128
  Receipt Date: 20111128
  Transmission Date: 20120403
  Serious: Yes (Other)
  Sender: FDA-Public Use
  Company Number: None

PATIENT
  Age: 64 Year
  Sex: Female
  Weight: 45.359 kg

DRUGS (2)
  1. CHANTIX [Suspect]
     Indication: SMOKING CESSATION THERAPY
     Dosage: 100MG
     Route: 048
  2. ALBUTEROL [Concomitant]

REACTIONS (6)
  - DEPRESSION [None]
  - BLOOD PRESSURE INCREASED [None]
  - INSOMNIA [None]
  - INCORRECT DOSE ADMINISTERED [None]
  - HALLUCINATION [None]
  - HEADACHE [None]
